FAERS Safety Report 6524866-4 (Version None)
Quarter: 2010Q1

REPORT INFORMATION
  Report Type: 
  Country: None (occurrence: None)
  Receive Date: 20100104
  Receipt Date: 20091204
  Transmission Date: 20100710
  Serious: No
  Sender: FDA-Public Use
  Company Number: US-BAYER-200942316NA

PATIENT
  Age: 65 Year
  Sex: Male

DRUGS (4)
  1. AVELOX [Suspect]
     Indication: DRUG USE FOR UNKNOWN INDICATION
     Dates: start: 20090101
  2. PREDNISONE [Suspect]
     Indication: SINUS POLYP
     Route: 048
     Dates: start: 20090601
  3. PREDNISONE [Suspect]
     Route: 048
     Dates: start: 19970101
  4. PREDNISONE [Suspect]
     Route: 048
     Dates: start: 20090601

REACTIONS (2)
  - ARTHRALGIA [None]
  - PAIN IN EXTREMITY [None]
